FAERS Safety Report 7012812-9 (Version None)
Quarter: 2010Q3

REPORT INFORMATION
  Report Type: 
  Country: None (occurrence: None)
  Receive Date: 20100924
  Receipt Date: 20100917
  Transmission Date: 20110219
  Serious: Yes (Other)
  Sender: FDA-Public Use
  Company Number: B0671332A

PATIENT
  Sex: Male
  Weight: 80 kg

DRUGS (4)
  1. SUMATRIPTAN SUCCINATE [Suspect]
     Indication: CLUSTER HEADACHE
     Route: 058
     Dates: start: 20030101
  2. QUILONORM [Concomitant]
     Indication: CLUSTER HEADACHE
     Dosage: 1876MG PER DAY
     Route: 048
     Dates: start: 20040101
  3. PANTOPRAZOLE SODIUM [Concomitant]
     Dosage: 40MG PER DAY
     Route: 048
  4. FLAMON [Concomitant]
     Indication: CLUSTER HEADACHE
     Dosage: 480MG PER DAY
     Route: 048
     Dates: start: 20030101

REACTIONS (2)
  - CLUSTER HEADACHE [None]
  - DEPENDENCE [None]
